FAERS Safety Report 5951992-0 (Version None)
Quarter: 2008Q4

REPORT INFORMATION
  Report Type: 
  Country: None (occurrence: None)
  Receive Date: 20081113
  Receipt Date: 20071023
  Transmission Date: 20090506
  Serious: No
  Sender: FDA-Public Use
  Company Number: A0689842A

PATIENT
  Sex: Male

DRUGS (3)
  1. COREG [Suspect]
     Dosage: 25MG TWICE PER DAY
  2. NORVASC [Suspect]
     Dosage: 5MG PER DAY
  3. LISINOPRIL [Suspect]
     Dosage: 40MG PER DAY

REACTIONS (2)
  - DRUG INEFFECTIVE [None]
  - HYPERTENSION [None]
